FAERS Safety Report 5655003-6 (Version None)
Quarter: 2008Q1

REPORT INFORMATION
  Report Type: 
  Country: None (occurrence: None)
  Receive Date: 20080307
  Receipt Date: 20071127
  Transmission Date: 20080703
  Serious: No
  Sender: FDA-Public Use
  Company Number: A0688273A

PATIENT
  Age: 72 Year
  Sex: Male

DRUGS (2)
  1. REQUIP [Suspect]
     Indication: PARKINSON'S DISEASE
     Dosage: 3MG THREE TIMES PER DAY
     Route: 048
     Dates: start: 20070501
  2. SELEGILINE HCL [Concomitant]

REACTIONS (3)
  - DIZZINESS POSTURAL [None]
  - FATIGUE [None]
  - SOMNOLENCE [None]
